FAERS Safety Report 10244096 (Version 1)
Quarter: 2014Q1

REPORT INFORMATION
  Report Type: Spontaneous
  Country: US (occurrence: None)
  Receive Date: 20140306
  Receipt Date: 20140306
  Transmission Date: 20141002
  Serious: Yes (Other)
  Sender: FDA-Public Use
  Company Number: 163-21880-13053215

PATIENT
  Age: 63 Year
  Sex: Male

DRUGS (9)
  1. REVLIMID (LENALIDOMIDE) (25 MILLIGRAM, CAPSULES) [Suspect]
     Indication: PLASMA CELL MYELOMA
     Route: 048
     Dates: start: 200812
  2. ACYCLOVIR (ACICLOVIR) (ACICLOVIR) [Concomitant]
  3. RISPERDAL [Concomitant]
  4. KYTRIL (GRANISETRON) [Concomitant]
  5. ASPIRIN (ACETYLSALICYLIC ACID) [Concomitant]
  6. DEXAMETHASONE  (DEXAMETHASONE) [Concomitant]
  7. KYPROLIS (CARFILZOMIB) [Concomitant]
  8. CLONAZEPAM (CLONAZEPAM) [Concomitant]
  9. ATIVAN (LORAZEPAM) [Concomitant]

REACTIONS (2)
  - Nocturia [None]
  - Asthenia [None]
